FAERS Safety Report 8204786-X (Version None)
Quarter: 2012Q1

REPORT INFORMATION
  Report Type: 
  Country: None (occurrence: None)
  Receive Date: 20120313
  Receipt Date: 20120305
  Transmission Date: 20120608
  Serious: Yes (Other)
  Sender: FDA-Public Use
  Company Number: CA-JNJFOC-20120302308

PATIENT
  Sex: Male
  Weight: 105 kg

DRUGS (5)
  1. METHOTREXATE [Concomitant]
     Route: 065
  2. SEROQUEL [Concomitant]
     Route: 065
  3. REMICADE [Suspect]
     Indication: PSORIATIC ARTHROPATHY
     Dosage: HAS RECEIVED 84 INFUSIONS
     Route: 042
     Dates: start: 20020228
  4. EFFEXOR [Concomitant]
     Route: 065
  5. CLONAZEPAM [Concomitant]
     Route: 065

REACTIONS (1)
  - HYPOAESTHESIA [None]
